FAERS Safety Report 18854815 (Version 1)
Quarter: 2021Q1

REPORT INFORMATION
  Report Type: Report from Study
  Country: US (occurrence: US)
  Receive Date: 20210205
  Receipt Date: 20210205
  Transmission Date: 20210420
  Serious: Yes (Hospitalization, Other)
  Sender: FDA-Public Use
  Company Number: US-JNJFOC-A-US2019-186723

PATIENT
  Age: 58 Year
  Sex: Female

DRUGS (2)
  1. OPSUMIT [Suspect]
     Active Substance: MACITENTAN
     Indication: PULMONARY ARTERIAL HYPERTENSION
     Dosage: 10 MG, QD
     Route: 048
     Dates: start: 20180709
  2. SILDENAFIL. [Suspect]
     Active Substance: SILDENAFIL
     Indication: PRODUCT USED FOR UNKNOWN INDICATION
     Dosage: UNK
     Route: 065

REACTIONS (13)
  - Ocular surface disease [Recovered/Resolved]
  - Scleroderma [Unknown]
  - Eye pain [Recovered/Resolved]
  - Arthritis [Unknown]
  - Corneal abrasion [Recovered/Resolved]
  - Thyroid disorder [Unknown]
  - Eye prosthesis insertion [Recovered/Resolved]
  - Infective corneal ulcer [Recovered/Resolved]
  - Cataract [Unknown]
  - Pulmonary hypertension [Unknown]
  - Eye excision [Recovered/Resolved]
  - Purulent discharge [Recovered/Resolved]
  - Osteoporosis [Unknown]

NARRATIVE: CASE EVENT DATE: 20200211
